FAERS Safety Report 17441127 (Version 1)
Quarter: 2020Q1

REPORT INFORMATION
  Report Type: Spontaneous
  Country: DE (occurrence: DE)
  Receive Date: 20200220
  Receipt Date: 20200220
  Transmission Date: 20200409
  Serious: Yes (Other)
  Sender: FDA-Public Use
  Company Number: DE-JNJFOC-20200224458

PATIENT
  Age: 68 Year
  Sex: Male

DRUGS (1)
  1. RIVAROXABAN [Suspect]
     Active Substance: RIVAROXABAN
     Indication: ATRIAL FIBRILLATION
     Dosage: 20 MG
     Route: 048
     Dates: start: 2018

REACTIONS (6)
  - Peripheral swelling [Unknown]
  - Gingival bleeding [Unknown]
  - Haemorrhagic diathesis [Unknown]
  - Wound infection [Unknown]
  - Impaired healing [Unknown]
  - Epistaxis [Unknown]
